FAERS Safety Report 7807852-3 (Version None)
Quarter: 2011Q4

REPORT INFORMATION
  Report Type: 
  Country: None (occurrence: None)
  Receive Date: 20111011
  Receipt Date: 20111003
  Transmission Date: 20120403
  Serious: Yes (Disabling)
  Sender: FDA-Public Use
  Company Number: FI-SANOFI-AVENTIS-2011SA064997

PATIENT
  Age: 49 Year
  Sex: Female

DRUGS (3)
  1. ZOLPIDEM TARTRATE [Suspect]
     Indication: INSOMNIA
     Dosage: STARTED ^OVER 10 YEARS AGO (NOS)^.
     Route: 048
  2. ZOLPIDEM TARTRATE [Suspect]
     Route: 048
  3. QUETIAPINE [Concomitant]
     Dosage: ^300 MG A DAY (BUT THE PATIENT HAS USED 150 MG A DAY)^. STARTED A COUPLE OF MONTHS AGO (NOS).
     Route: 048

REACTIONS (5)
  - DRUG INEFFECTIVE [None]
  - ROAD TRAFFIC ACCIDENT [None]
  - AMNESIA [None]
  - INTENTIONAL OVERDOSE [None]
  - SOMNAMBULISM [None]
